FAERS Safety Report 13847921 (Version 1)
Quarter: 2017Q3

REPORT INFORMATION
  Report Type: Spontaneous
  Country: US (occurrence: US)
  Receive Date: 20170808
  Receipt Date: 20170808
  Transmission Date: 20171127
  Serious: No
  Sender: FDA-Public Use
  Company Number: None

PATIENT
  Age: 68 Year
  Sex: Male
  Weight: 125.1 kg

DRUGS (20)
  1. FLUTICOSONE PROPRIANATE [Concomitant]
  2. FLUORIDEX [Concomitant]
     Active Substance: STANNOUS FLUORIDE
  3. ALBUTEROL SULFATE. [Concomitant]
     Active Substance: ALBUTEROL SULFATE
  4. FLEXERIL [Concomitant]
     Active Substance: CYCLOBENZAPRINE HYDROCHLORIDE
  5. FOSINOPRIL [Suspect]
     Active Substance: FOSINOPRIL
     Indication: HYPERTENSION
     Dosage: ?          QUANTITY:1 TABLET(S);?
     Route: 048
     Dates: start: 20170726, end: 20170808
  6. SALONPAS PAIN RELIEF [Concomitant]
     Active Substance: MENTHOL\METHYL SALICYLATE
  7. ZOFRAN [Concomitant]
     Active Substance: ONDANSETRON HYDROCHLORIDE
  8. ALLEGRA [Concomitant]
     Active Substance: FEXOFENADINE HYDROCHLORIDE
  9. CLONAZEPAM. [Concomitant]
     Active Substance: CLONAZEPAM
  10. HUMALOG [Concomitant]
     Active Substance: INSULIN LISPRO
  11. CALCIUM WITH VIT D [Concomitant]
  12. HYDROCHLOROTHIAZIDE. [Concomitant]
     Active Substance: HYDROCHLOROTHIAZIDE
  13. BREO ELLIPTA [Concomitant]
     Active Substance: FLUTICASONE FUROATE\VILANTEROL TRIFENATATE
  14. NORCO WITH ACETOMINOPHEN [Concomitant]
  15. SODIUM HYALURONATE [Concomitant]
     Active Substance: HYALURONATE SODIUM
  16. SYNVISC [Concomitant]
     Active Substance: HYALURONATE SODIUM
  17. DUCOSATE SODIUM [Concomitant]
  18. ALLOPURINOL. [Concomitant]
     Active Substance: ALLOPURINOL
  19. LIPITOR [Concomitant]
     Active Substance: ATORVASTATIN CALCIUM
  20. BUSPIRONE [Concomitant]
     Active Substance: BUSPIRONE HYDROCHLORIDE

REACTIONS (5)
  - Headache [None]
  - Therapy change [None]
  - Dizziness [None]
  - Asthenia [None]
  - Ventricular extrasystoles [None]

NARRATIVE: CASE EVENT DATE: 20170808
